FAERS Safety Report 5339466-1 (Version None)
Quarter: 2007Q2

REPORT INFORMATION
  Report Type: 
  Country: None (occurrence: None)
  Receive Date: 20070404
  Receipt Date: 20060426
  Transmission Date: 20071010
  Serious: Yes (Other)
  Sender: FDA-Public Use
  Company Number: 2006057067

PATIENT
  Age: 41 Year
  Sex: Female
  Weight: 63.5036 kg

DRUGS (2)
  1. GEODON [Suspect]
     Indication: ILL-DEFINED DISORDER
     Dosage: 80 MG (80 MG, INTERVAL: EVERY DAY)
     Dates: start: 20060401, end: 20060419
  2. XANAX [Concomitant]

REACTIONS (6)
  - ASTHENIA [None]
  - CONVULSION [None]
  - FEELING ABNORMAL [None]
  - MALAISE [None]
  - PAIN IN EXTREMITY [None]
  - VOMITING [None]
